FAERS Safety Report 14938642 (Version 2)
Quarter: 2018Q3

REPORT INFORMATION
  Report Type: Report from Study
  Country: CO (occurrence: CO)
  Receive Date: 20180525
  Receipt Date: 20180831
  Transmission Date: 20181010
  Serious: Yes (Hospitalization, Other)
  Sender: FDA-Public Use
  Company Number: CO-BRISTOL-MYERS SQUIBB COMPANY-BMS-2018-046762

PATIENT
  Sex: Female

DRUGS (1)
  1. ABATACEPT [Suspect]
     Active Substance: ABATACEPT
     Indication: RHEUMATOID ARTHRITIS
     Dosage: 500 MG, QMO
     Route: 042
     Dates: start: 20180320, end: 20180708

REACTIONS (4)
  - Haemoglobin decreased [Unknown]
  - Chronic gastritis [Not Recovered/Not Resolved]
  - Off label use [Unknown]
  - Lung infection [Unknown]

NARRATIVE: CASE EVENT DATE: 20180514
